FAERS Safety Report 4495788-8 (Version None)
Quarter: 2004Q4

REPORT INFORMATION
  Report Type: 
  Country: None (occurrence: None)
  Receive Date: 20041104
  Receipt Date: 20041026
  Transmission Date: 20050328
  Serious: Yes (Other)
  Sender: FDA-Public Use
  Company Number: 2004-10-1781

PATIENT
  Age: 18 Year
  Sex: Male

DRUGS (2)
  1. PEG-INTRON [Suspect]
     Dosage: 120 MCG SUBCUTANEOUS
     Route: 058
     Dates: start: 20020101, end: 20031101
  2. REBETOL [Suspect]
     Dosage: 1000 MG QD ORAL
     Route: 048
     Dates: start: 20020101, end: 20031101

REACTIONS (4)
  - BLOOD CHOLESTEROL INCREASED [None]
  - BLOOD TRIGLYCERIDES INCREASED [None]
  - PITUITARY-DEPENDENT CUSHING'S SYNDROME [None]
  - WEIGHT INCREASED [None]
